FAERS Safety Report 14111133 (Version 2)
Quarter: 2017Q4

REPORT INFORMATION
  Report Type: Report from Study
  Country: US (occurrence: US)
  Receive Date: 20171020
  Receipt Date: 20171107
  Transmission Date: 20180321
  Serious: Yes (Other)
  Sender: FDA-Public Use
  Company Number: US-RETROPHIN, INC.-2017RTN00107

PATIENT
  Age: 24 Day
  Sex: Female
  Weight: 5 kg

DRUGS (4)
  1. LEVETIRACETAM. [Concomitant]
     Active Substance: LEVETIRACETAM
     Dosage: UNK
     Dates: start: 2017
  2. PHENOBARBITAL. [Concomitant]
     Active Substance: PHENOBARBITAL
  3. LACOSAMIDE. [Concomitant]
     Active Substance: LACOSAMIDE
  4. CHOLIC ACID [Suspect]
     Active Substance: CHOLIC ACID
     Indication: INBORN ERROR IN PRIMARY BILE ACID SYNTHESIS
     Dosage: 50 MG, 1X/DAY
     Dates: start: 20170913

REACTIONS (3)
  - Rhinovirus infection [Recovered/Resolved]
  - Seizure [Recovering/Resolving]
  - Wheezing [Recovered/Resolved]

NARRATIVE: CASE EVENT DATE: 201709
